FAERS Safety Report 9858735 (Version 3)
Quarter: 2014Q1

REPORT INFORMATION
  Report Type: Spontaneous
  Country: IL (occurrence: IL)
  Receive Date: 20140131
  Receipt Date: 20140213
  Transmission Date: 20141002
  Serious: Yes (Other)
  Sender: FDA-Public Use
  Company Number: IL-JNJFOC-20140116644

PATIENT
  Age: 8 Decade
  Sex: Male

DRUGS (1)
  1. SIMPONI [Suspect]
     Indication: PRODUCT USED FOR UNKNOWN INDICATION
     Route: 058
     Dates: start: 20131007, end: 20131231

REACTIONS (2)
  - Cardiac failure [Unknown]
  - Drug ineffective [Recovering/Resolving]
